FAERS Safety Report 12826654 (Version 1)
Quarter: 2016Q4

REPORT INFORMATION
  Report Type: Spontaneous
  Country: US (occurrence: US)
  Receive Date: 20161007
  Receipt Date: 20161007
  Transmission Date: 20170207
  Serious: No
  Sender: FDA-Public Use
  Company Number: US-WATSON-2016-14397

PATIENT
  Age: 52 Year
  Sex: Female

DRUGS (2)
  1. LORAZEPAM. [Concomitant]
     Active Substance: LORAZEPAM
     Indication: ANXIETY
     Dosage: 2 MG, BID
     Route: 048
  2. FENTANYL-50 (WATSON LABORATORIES) [Suspect]
     Active Substance: FENTANYL
     Indication: PAIN MANAGEMENT
     Dosage: 50 MCG/HR, EVERY 3 DAYS
     Route: 062

REACTIONS (2)
  - Drug ineffective [Not Recovered/Not Resolved]
  - Opiates negative [Not Recovered/Not Resolved]

NARRATIVE: CASE EVENT DATE: 201606
